FAERS Safety Report 7194275-6 (Version None)
Quarter: 2010Q4

REPORT INFORMATION
  Report Type: 
  Country: None (occurrence: None)
  Receive Date: 20101223
  Receipt Date: 20101221
  Transmission Date: 20110411
  Serious: Yes (Hospitalization, Disabling, Other)
  Sender: FDA-Public Use
  Company Number: AU-AMGEN-AUSSP2010007116

PATIENT

DRUGS (3)
  1. NPLATE [Suspect]
     Indication: IDIOPATHIC THROMBOCYTOPENIC PURPURA
     Dosage: 2 A?G/KG, Q2WK
     Dates: start: 20100101
  2. NPLATE [Suspect]
     Dosage: 600 A?G, ONE TIME DOSE
     Dates: start: 20101119, end: 20101119
  3. INTRAGAM P [Suspect]
     Dosage: 63 G, QD
     Dates: start: 20101119, end: 20101120

REACTIONS (5)
  - APHASIA [None]
  - MEDICATION ERROR [None]
  - PLATELET COUNT INCREASED [None]
  - THROMBOTIC STROKE [None]
  - VAGINAL HAEMORRHAGE [None]
